FAERS Safety Report 6986432-6 (Version None)
Quarter: 2010Q3

REPORT INFORMATION
  Report Type: 
  Country: None (occurrence: None)
  Receive Date: 20100915
  Receipt Date: 20090629
  Transmission Date: 20110219
  Serious: No
  Sender: FDA-Public Use
  Company Number: US-WYE-H09979109

PATIENT
  Sex: Female
  Weight: 65.38 kg

DRUGS (10)
  1. PRISTIQ [Suspect]
     Indication: DEPRESSION
     Route: 048
     Dates: start: 20090615
  2. LORAZEPAM [Concomitant]
  3. PANTOPRAZOLE [Concomitant]
  4. MAGNESIUM [Concomitant]
  5. PROMETHAZINE [Concomitant]
  6. LISINOPRIL AND HYDROCHLOROTHIAZIDE [Concomitant]
  7. TYLENOL [Concomitant]
  8. CLONAZEPAM [Concomitant]
  9. LUVOX [Concomitant]
  10. IMODIUM [Concomitant]

REACTIONS (2)
  - FAECES DISCOLOURED [None]
  - VOMITING [None]
